FAERS Safety Report 9406225 (Version 1)
Quarter: 2013Q3

REPORT INFORMATION
  Report Type: Spontaneous
  Country: US (occurrence: US)
  Receive Date: 20130717
  Receipt Date: 20130717
  Transmission Date: 20140515
  Serious: No
  Sender: FDA-Public Use
  Company Number: US-BAUSCH-BL-2012-000792

PATIENT
  Sex: Female

DRUGS (4)
  1. BESIVANCE (BESIFLOXACIN OPHTHALMIC SUSPENSION) 0.6% [Suspect]
     Indication: PRODUCT USED FOR UNKNOWN INDICATION
     Route: 047
     Dates: start: 20120731
  2. NEPAFENAC [Suspect]
  3. INSULIN GLARGINE [Concomitant]
  4. INSULIN ASPART [Concomitant]

REACTIONS (1)
  - Blood glucose increased [Unknown]
